FAERS Safety Report 8657938 (Version 3)
Quarter: 2012Q4

REPORT INFORMATION
  Report Type: 
  Country: US (occurrence: US)
  Receive Date: 20120710
  Receipt Date: 20120830
  Transmission Date: 20130627
  Serious: Yes (Death)
  Sender: FDA-Public Use
  Company Number: PHEH2012US013422

PATIENT
  Age: 78 Year
  Sex: Male

DRUGS (9)
  1. TASIGNA [Suspect]
     Indication: CHRONIC MYELOID LEUKAEMIA
     Dosage: 300 mg, BID
     Route: 048
     Dates: start: 20120308, end: 20120610
  2. GLEEVEC [Concomitant]
  3. RUXOLITINIB [Concomitant]
  4. ALLOPURINOL [Concomitant]
     Dosage: 300 mg, QD
     Route: 048
  5. LASIX [Concomitant]
     Indication: FLUID RETENTION
     Dosage: 40 mg, QD
     Route: 048
  6. DITROPAN [Concomitant]
     Indication: HYPERTONIC BLADDER
     Dosage: 5 mg, QD
     Route: 048
  7. FLOMAX [Concomitant]
     Indication: BENIGN PROSTATIC HYPERPLASIA
     Dosage: 0.4 mg, QD
     Route: 048
  8. MULTIVITAMIN [Concomitant]
     Route: 048
  9. COLACE [Concomitant]
     Dosage: 100 mg, TID
     Route: 048

REACTIONS (2)
  - Death [Fatal]
  - Hospice care [None]
